FAERS Safety Report 25958412 (Version 1)
Quarter: 2025Q4

REPORT INFORMATION
  Report Type: Spontaneous
  Country: US (occurrence: US)
  Receive Date: 20251024
  Receipt Date: 20251024
  Transmission Date: 20260119
  Serious: No
  Sender: DR REDDYS
  Company Number: US-DRL-USA-USA/2025/10/015666

PATIENT
  Age: 30 Year
  Sex: Female

DRUGS (7)
  1. PROPOFOL [Suspect]
     Active Substance: PROPOFOL
     Indication: General anaesthesia
     Dosage: BOLUS
     Route: 040
  2. PROPOFOL [Suspect]
     Active Substance: PROPOFOL
     Dosage: 100 \U03BCG/KG/ MIN
     Route: 040
  3. PROPOFOL [Suspect]
     Active Substance: PROPOFOL
     Dosage: 80 \U03BCG/KG/MIN
     Route: 040
  4. LIDOCAINE [Concomitant]
     Active Substance: LIDOCAINE
     Indication: General anaesthesia
     Dosage: 2% INFUSION SET AT 6 MG/HR
  5. REMIFENTANIL [Concomitant]
     Active Substance: REMIFENTANIL
     Indication: General anaesthesia
     Dosage: 0.1 \U03BCG/KG/MIN
  6. ROCURONIUM [Concomitant]
     Active Substance: ROCURONIUM BROMIDE
     Indication: Hypotonia
     Dosage: INTERMITTENT DOSES
  7. FENTANYL [Concomitant]
     Active Substance: FENTANYL
     Indication: Somatic pain
     Dosage: SUPPLEMENTARY DOSES

REACTIONS (1)
  - Electroencephalogram abnormal [Recovered/Resolved]
